FAERS Safety Report 5495738-1 (Version None)
Quarter: 2007Q4

REPORT INFORMATION
  Report Type: 
  Country: None (occurrence: None)
  Receive Date: 20071025
  Receipt Date: 20061012
  Transmission Date: 20080405
  Serious: No
  Sender: FDA-Public Use
  Company Number: A0623380A

PATIENT
  Age: 93 Year
  Sex: Male

DRUGS (10)
  1. ADVAIR DISKUS 100/50 [Suspect]
     Indication: ASTHMA
     Dosage: 1PUFF TWICE PER DAY
     Route: 055
  2. UNIPHYL [Concomitant]
  3. BRETHINE [Concomitant]
  4. PREDNISONE [Concomitant]
  5. LASIX [Concomitant]
  6. TOPROL-XL [Concomitant]
  7. QUINAPRIL HCL [Concomitant]
  8. PRILOSEC [Concomitant]
  9. ALBUTEROL [Concomitant]
  10. IPRATROPIUM BROMIDE [Concomitant]

REACTIONS (1)
  - LARYNGITIS [None]
